FAERS Safety Report 17050358 (Version 6)
Quarter: 2019Q4

REPORT INFORMATION
  Report Type: Report from Study
  Country: HU (occurrence: HU)
  Receive Date: 20191119
  Receipt Date: 20191223
  Transmission Date: 20200122
  Serious: Yes (Death)
  Sender: FDA-Public Use
  Company Number: HU-PFIZER INC-2019501197

PATIENT
  Age: 58 Year
  Sex: Male
  Weight: 83 kg

DRUGS (18)
  1. AVELUMAB [Suspect]
     Active Substance: AVELUMAB
     Dosage: 800 MG, UNK
     Route: 042
     Dates: end: 20191104
  2. GEMCITABINE HYDROCHLORIDE. [Suspect]
     Active Substance: GEMCITABINE HYDROCHLORIDE
     Indication: NON-SMALL CELL LUNG CANCER
     Dosage: 2487 MG, UNK
     Route: 042
     Dates: start: 20190930, end: 20191104
  3. CETUXIMAB. [Suspect]
     Active Substance: CETUXIMAB
     Dosage: 497.5 MG, UNK
     Route: 042
  4. CETUXIMAB. [Suspect]
     Active Substance: CETUXIMAB
     Dosage: 497.5 MG, UNK
     Route: 042
  5. AVELUMAB [Suspect]
     Active Substance: AVELUMAB
     Dosage: 800 MG, UNK
     Route: 042
  6. CETUXIMAB. [Suspect]
     Active Substance: CETUXIMAB
     Indication: NON-SMALL CELL LUNG CANCER
     Dosage: 497.5 MG, UNK
     Route: 042
     Dates: start: 20190930
  7. AVELUMAB [Suspect]
     Active Substance: AVELUMAB
     Dosage: 800 MG, UNK
     Route: 042
  8. CISPLATIN. [Suspect]
     Active Substance: CISPLATIN
     Dosage: 149 MG, UNK
     Route: 042
  9. CETUXIMAB. [Suspect]
     Active Substance: CETUXIMAB
     Dosage: 497.5 MG, UNK
     Route: 042
     Dates: end: 20191104
  10. AVELUMAB [Suspect]
     Active Substance: AVELUMAB
     Indication: NON-SMALL CELL LUNG CANCER
     Dosage: 800 MG, UNK
     Route: 042
     Dates: start: 20190930
  11. CETUXIMAB. [Suspect]
     Active Substance: CETUXIMAB
     Dosage: 497.5 MG, UNK
     Route: 042
  12. CETUXIMAB. [Suspect]
     Active Substance: CETUXIMAB
     Dosage: 497.5 MG, UNK
     Route: 042
  13. CISPLATIN. [Suspect]
     Active Substance: CISPLATIN
     Dosage: 149 MG, UNK
     Route: 042
     Dates: end: 20191022
  14. CETUXIMAB. [Suspect]
     Active Substance: CETUXIMAB
     Dosage: 497.5 MG, UNK
     Route: 042
  15. CISPLATIN. [Suspect]
     Active Substance: CISPLATIN
     Indication: NON-SMALL CELL LUNG CANCER
     Dosage: 149 MG, UNK
     Route: 042
     Dates: start: 20190930
  16. CETUXIMAB. [Suspect]
     Active Substance: CETUXIMAB
     Dosage: 497.5 MG, UNK
     Route: 042
  17. CETUXIMAB. [Suspect]
     Active Substance: CETUXIMAB
     Dosage: 497.5 MG, UNK
     Route: 042
  18. CETUXIMAB. [Suspect]
     Active Substance: CETUXIMAB
     Dosage: 497.5 MG, UNK
     Route: 042

REACTIONS (1)
  - Death [Fatal]

NARRATIVE: CASE EVENT DATE: 20191108
